FAERS Safety Report 17232317 (Version 1)
Quarter: 2020Q1

REPORT INFORMATION
  Report Type: Spontaneous
  Country: DE (occurrence: DE)
  Receive Date: 20200103
  Receipt Date: 20200103
  Transmission Date: 20200409
  Serious: Yes (Congenital Anomaly)
  Sender: FDA-Public Use
  Company Number: DE-ALLERGAN-1953373US

PATIENT
  Sex: Female

DRUGS (5)
  1. SALBUTAMOL [Suspect]
     Active Substance: ALBUTEROL
     Indication: EXPOSURE DURING PREGNANCY
     Dosage: DURING THE SECOND AND THIRD TRIMESTERS
     Route: 064
  2. MESALAZINE UNK [Suspect]
     Active Substance: MESALAMINE
     Indication: EXPOSURE DURING PREGNANCY
     Dosage: DURING THE FIRST TRIMESTER
     Route: 064
  3. PARACETAMOL [Suspect]
     Active Substance: ACETAMINOPHEN
     Indication: EXPOSURE DURING PREGNANCY
     Dosage: AT GESTATIONAL WEEK 26+3
     Route: 064
  4. BUDESONIDE. [Suspect]
     Active Substance: BUDESONIDE
     Indication: EXPOSURE DURING PREGNANCY
     Dosage: DURING THE SECOND AND THIRD TRIMESTERS
     Route: 064
  5. FORMOTEROL [Suspect]
     Active Substance: FORMOTEROL
     Indication: EXPOSURE DURING PREGNANCY
     Dosage: DURING THE SECOND AND THIRD TRIMESTERS
     Route: 064

REACTIONS (2)
  - Pregnancy [Unknown]
  - Patent ductus arteriosus [Recovered/Resolved]
